FAERS Safety Report 6734596-1 (Version None)
Quarter: 2010Q2

REPORT INFORMATION
  Report Type: 
  Country: None (occurrence: None)
  Receive Date: 20100519
  Receipt Date: 20100503
  Transmission Date: 20101027
  Serious: Yes (Hospitalization, Other)
  Sender: FDA-Public Use
  Company Number: TPA2009A04246

PATIENT
  Age: 67 Year
  Sex: Male
  Weight: 84.8226 kg

DRUGS (10)
  1. PIOGLITAZONE HYDROCHLORIDE (CODE NOT BROKEN) (PIOGLITAZONE HYDROCHLORI [Suspect]
     Indication: CARDIOVASCULAR EVENT PROPHYLAXIS
     Dosage: 1 IN 1 D, PER ORAL ; 1 IN 1 D, PER ORAL ; 1 IN 1 D, PER ORAL
     Route: 048
     Dates: start: 20080514, end: 20080610
  2. PIOGLITAZONE HYDROCHLORIDE (CODE NOT BROKEN) (PIOGLITAZONE HYDROCHLORI [Suspect]
     Indication: CARDIOVASCULAR EVENT PROPHYLAXIS
     Dosage: 1 IN 1 D, PER ORAL ; 1 IN 1 D, PER ORAL ; 1 IN 1 D, PER ORAL
     Route: 048
     Dates: start: 20080611, end: 20080710
  3. PIOGLITAZONE HYDROCHLORIDE (CODE NOT BROKEN) (PIOGLITAZONE HYDROCHLORI [Suspect]
     Indication: CARDIOVASCULAR EVENT PROPHYLAXIS
     Dosage: 1 IN 1 D, PER ORAL ; 1 IN 1 D, PER ORAL ; 1 IN 1 D, PER ORAL
     Route: 048
     Dates: start: 20080711, end: 20091112
  4. ADALAT [Suspect]
  5. DIOVAN HCT [Suspect]
     Dosage: 160 MG/ 25MG ; 80 MG/ 12.5 MG
  6. LIPITOR [Concomitant]
  7. PERINDOPRIL ERBUMINE [Concomitant]
  8. LYRICA [Concomitant]
  9. ASPIRIN [Concomitant]
  10. COUMADIN [Concomitant]

REACTIONS (8)
  - AORTIC ANEURYSM [None]
  - BLADDER CANCER [None]
  - HEPATIC LESION [None]
  - MANTLE CELL LYMPHOMA [None]
  - PULSE ABNORMAL [None]
  - RENAL FAILURE [None]
  - RESPIRATORY DEPRESSION [None]
  - SPLENOMEGALY [None]
